FAERS Safety Report 4711001-8 (Version None)
Quarter: 2005Q3

REPORT INFORMATION
  Report Type: 
  Country: None (occurrence: None)
  Receive Date: 20050708
  Receipt Date: 20050624
  Transmission Date: 20060218
  Serious: Yes (Hospitalization)
  Sender: FDA-Public Use
  Company Number: DSA_26553_2005

PATIENT
  Age: 55 Year
  Sex: Female

DRUGS (3)
  1. TAVOR [Suspect]
     Dosage: 7 MG ONCE PO
     Route: 048
     Dates: start: 20050528, end: 20050528
  2. DALMADORM ^HOFFMANN^ [Suspect]
     Dosage: 90 MG ONCE PO
     Route: 048
     Dates: start: 20050528, end: 20050528
  3. MELLARIL [Suspect]
     Dosage: 180 MG ONCE PO
     Route: 048
     Dates: start: 20050528, end: 20050528

REACTIONS (5)
  - BRADYCARDIA [None]
  - FATIGUE [None]
  - INTENTIONAL MISUSE [None]
  - MULTIPLE DRUG OVERDOSE [None]
  - MYDRIASIS [None]
